FAERS Safety Report 4992015-X (Version None)
Quarter: 2006Q2

REPORT INFORMATION
  Report Type: 
  Country: None (occurrence: None)
  Receive Date: 20060504
  Receipt Date: 20050706
  Transmission Date: 20061013
  Serious: Yes (Hospitalization)
  Sender: FDA-Public Use
  Company Number: US-MERCK-0507USA00789

PATIENT
  Age: 55 Year
  Sex: Male
  Weight: 109 kg

DRUGS (6)
  1. VIOXX [Suspect]
     Indication: MUSCULOSKELETAL DISORDER
     Route: 048
     Dates: start: 20040603, end: 20040721
  2. BEXTRA [Suspect]
     Route: 065
  3. CELEBREX [Suspect]
     Route: 065
  4. LEVOXYL [Concomitant]
     Route: 065
  5. OXYCODONE [Concomitant]
     Route: 065
  6. ACCUPRIL [Concomitant]
     Route: 065

REACTIONS (4)
  - ADVERSE EVENT [None]
  - ATRIOVENTRICULAR BLOCK [None]
  - HYPERTENSION [None]
  - MYOCARDIAL INFARCTION [None]
